FAERS Safety Report 6464379-1 (Version None)
Quarter: 2009Q4

REPORT INFORMATION
  Report Type: 
  Country: None (occurrence: None)
  Receive Date: 20091201
  Receipt Date: 20091123
  Transmission Date: 20100525
  Serious: Yes (Hospitalization, Other)
  Sender: FDA-Public Use
  Company Number: DK-JNJFOC-20090908795

PATIENT
  Sex: Female

DRUGS (3)
  1. REMICADE [Suspect]
     Indication: UVEITIS
     Route: 042
     Dates: start: 20041001
  2. FOLIC ACID [Concomitant]
     Dates: start: 20041001
  3. FOSAMAX [Concomitant]
     Dates: start: 20081113

REACTIONS (1)
  - VESTIBULAR NEURONITIS [None]
